FAERS Safety Report 5943240-2 (Version None)
Quarter: 2008Q4

REPORT INFORMATION
  Report Type: 
  Country: None (occurrence: None)
  Receive Date: 20081106
  Receipt Date: 20081028
  Transmission Date: 20090506
  Serious: Yes (Other)
  Sender: FDA-Public Use
  Company Number: NL-BRISTOL-MYERS SQUIBB COMPANY-14387872

PATIENT
  Age: 43 Year
  Sex: Male
  Weight: 87 kg

DRUGS (2)
  1. ENTECAVIR [Suspect]
     Indication: HEPATITIS B
  2. LAMIVUDINE [Suspect]
     Indication: HEPATITIS B

REACTIONS (2)
  - ALANINE AMINOTRANSFERASE INCREASED [None]
  - VIRAL LOAD INCREASED [None]
